FAERS Safety Report 17909777 (Version 1)
Quarter: 2020Q2

REPORT INFORMATION
  Report Type: Spontaneous
  Country: US (occurrence: US)
  Receive Date: 20200617
  Receipt Date: 20200617
  Transmission Date: 20200714
  Serious: No
  Sender: FDA-Public Use
  Company Number: US-ASTRAZENECA-2020SE72805

PATIENT
  Age: 66 Year
  Sex: Male
  Weight: 79.4 kg

DRUGS (9)
  1. FASENRA [Suspect]
     Active Substance: BENRALIZUMAB
     Indication: EOSINOPHILIC BRONCHITIS
     Route: 058
     Dates: start: 20200203
  2. FASENRA [Suspect]
     Active Substance: BENRALIZUMAB
     Indication: EOSINOPHILIC BRONCHITIS
     Route: 058
  3. VENTOLIN HFA ALBUTEROL INHALER [Concomitant]
     Indication: ASTHMA PROPHYLAXIS
     Dosage: 90 UG-PRESCRIBED EVERY 4 HOURS BUT HE ONLY TAKES IT IF HE NEEDS IT
     Route: 055
  4. FLOVENT [Concomitant]
     Active Substance: FLUTICASONE PROPIONATE
     Indication: BRONCHITIS
     Dosage: 110MCG 1 PUFF - TWO TIMES A DAY
     Route: 055
  5. NEBULIZER ALBUTEROL [Concomitant]
     Active Substance: ALBUTEROL
     Indication: BRONCHITIS
     Dosage: 2.5MG-3ML AT NIGHT
     Route: 055
  6. SYMBICORT [Suspect]
     Active Substance: BUDESONIDE\FORMOTEROL FUMARATE DIHYDRATE
     Indication: BRONCHITIS
     Dosage: 160-4.5MCG 2 PUFFS TWO TIMES A DAY
     Route: 055
     Dates: start: 2019, end: 2019
  7. FASENRA [Suspect]
     Active Substance: BENRALIZUMAB
     Indication: EOSINOPHILIC BRONCHITIS
     Route: 058
     Dates: start: 2020
  8. PREDNISONE. [Concomitant]
     Active Substance: PREDNISONE
     Indication: BRONCHITIS
     Dates: end: 201901
  9. PREDNISONE. [Concomitant]
     Active Substance: PREDNISONE
     Indication: BRONCHITIS
     Dosage: HIS PULMONOLOGIST PUT HIM ON A STARTING DOSE OF PREDNISONE 50MG AND THEN TAPERED DOWN UNTIL HE WA...

REACTIONS (6)
  - Cough [Not Recovered/Not Resolved]
  - Dysphonia [Recovered/Resolved]
  - Symptom recurrence [Unknown]
  - Chest discomfort [Not Recovered/Not Resolved]
  - Vocal cord disorder [Recovered/Resolved]
  - Drug ineffective [Recovered/Resolved]

NARRATIVE: CASE EVENT DATE: 2019
